FAERS Safety Report 5314265-5 (Version None)
Quarter: 2007Q2

REPORT INFORMATION
  Report Type: 
  Country: None (occurrence: None)
  Receive Date: 20070501
  Receipt Date: 20070419
  Transmission Date: 20071010
  Serious: Yes (Other)
  Sender: FDA-Public Use
  Company Number: GB-SANOFI-SYNTHELABO-A01200703849

PATIENT
  Sex: Female

DRUGS (2)
  1. PLAVIX [Suspect]
     Indication: CAROTID ARTERY DISSECTION
     Dosage: UNK
     Route: 048
     Dates: start: 20040101
  2. ASPIRIN [Concomitant]
     Indication: CAROTID ARTERY DISSECTION
     Dosage: UNK
     Route: 065
     Dates: start: 20040101

REACTIONS (3)
  - ABORTION SPONTANEOUS [None]
  - DRUG EXPOSURE DURING PREGNANCY [None]
  - VISUAL DISTURBANCE [None]
